FAERS Safety Report 5057397-1 (Version None)
Quarter: 2006Q3

REPORT INFORMATION
  Report Type: 
  Country: None (occurrence: None)
  Receive Date: 20060721
  Receipt Date: 20050920
  Transmission Date: 20061208
  Serious: No
  Sender: FDA-Public Use
  Company Number: US-GLAXOSMITHKLINE-A0575037A

PATIENT
  Age: 63 Year
  Sex: Male

DRUGS (8)
  1. AVANDIA [Suspect]
     Dosage: 8MG PER DAY
     Route: 048
  2. MICRONASE [Concomitant]
     Dosage: 10MG TWICE PER DAY
  3. ATENOLOL [Concomitant]
  4. PLAVIX [Concomitant]
  5. ZOCOR [Concomitant]
  6. ASPIRIN [Concomitant]
  7. IRON [Concomitant]
  8. CALCIUM GLUCONATE [Concomitant]

REACTIONS (1)
  - OEDEMA PERIPHERAL [None]
